FAERS Safety Report 5280228-1 (Version None)
Quarter: 2007Q1

REPORT INFORMATION
  Report Type: 
  Country: None (occurrence: None)
  Receive Date: 20070329
  Receipt Date: 20070321
  Transmission Date: 20070707
  Serious: Yes (Hospitalization)
  Sender: FDA-Public Use
  Company Number: PHEH2007US03336

PATIENT
  Sex: Male

DRUGS (3)
  1. ZOMETA [Suspect]
     Indication: MULTIPLE MYELOMA
  2. REVLIMID [Suspect]
     Indication: MULTIPLE MYELOMA
     Dosage: 25 MG  X 21 DAYS THEN OFF FOR SEVEN
     Route: 048
     Dates: start: 20070202
  3. DEXAMETHASONE [Suspect]

REACTIONS (2)
  - BLOOD GLUCOSE INCREASED [None]
  - INFECTION [None]
